FAERS Safety Report 7257077-8 (Version None)
Quarter: 2011Q1

REPORT INFORMATION
  Report Type: 
  Country: None (occurrence: None)
  Receive Date: 20110129
  Receipt Date: 20100716
  Transmission Date: 20110831
  Serious: No
  Sender: FDA-Public Use
  Company Number: US-ABBOTT-10P-163-0658578-00

PATIENT
  Weight: 74.91 kg

DRUGS (8)
  1. OXYCONTIN [Concomitant]
     Indication: PAIN
  2. HUMIRA [Suspect]
     Indication: RHEUMATOID ARTHRITIS
     Dates: start: 20091101
  3. B-12  SHOT [Concomitant]
  4. PREDSONE [Concomitant]
  5. AMBIEN [Concomitant]
     Indication: INSOMNIA
  6. CYMBALTA [Concomitant]
     Indication: DEPRESSION
  7. OXYCODONE [Concomitant]
     Indication: PAIN
  8. IBUPROFEN [Concomitant]

REACTIONS (6)
  - ANAEMIA VITAMIN B12 DEFICIENCY [None]
  - INJECTION SITE PAIN [None]
  - NAUSEA [None]
  - ABDOMINAL PAIN [None]
  - BACK PAIN [None]
  - DEVICE MALFUNCTION [None]
